FAERS Safety Report 4814600-8 (Version None)
Quarter: 2005Q4

REPORT INFORMATION
  Report Type: 
  Country: None (occurrence: None)
  Receive Date: 20051028
  Receipt Date: 20051026
  Transmission Date: 20060501
  Serious: Yes (Other)
  Sender: FDA-Public Use
  Company Number: US-GLAXOSMITHKLINE-A0579771A

PATIENT
  Age: 18 Year
  Sex: Male

DRUGS (4)
  1. WELLBUTRIN XL [Suspect]
     Indication: ATTENTION DEFICIT/HYPERACTIVITY DISORDER
     Dosage: 150MG PER DAY
     Route: 048
  2. ADDERALL 10 [Concomitant]
  3. ALCOHOL [Concomitant]
  4. MARIJUANA [Concomitant]

REACTIONS (1)
  - ACUTE PSYCHOSIS [None]
